FAERS Safety Report 6810341-6 (Version None)
Quarter: 2010Q2

REPORT INFORMATION
  Report Type: 
  Country: None (occurrence: None)
  Receive Date: 20100630
  Receipt Date: 20100622
  Transmission Date: 20101027
  Serious: Yes (Hospitalization, Other)
  Sender: FDA-Public Use
  Company Number: PHHY2010TR38200

PATIENT
  Sex: Female

DRUGS (2)
  1. TEGRETOL-XR [Suspect]
     Dosage: 200 MG,UNK
     Route: 048
     Dates: start: 20100502, end: 20100515
  2. METOPROLOL SUCCINATE [Concomitant]
     Dosage: 50MG, UNK

REACTIONS (10)
  - ALANINE AMINOTRANSFERASE INCREASED [None]
  - ASPARTATE AMINOTRANSFERASE INCREASED [None]
  - BLOOD BILIRUBIN INCREASED [None]
  - BLOOD CHLORIDE DECREASED [None]
  - BLOOD LACTATE DEHYDROGENASE INCREASED [None]
  - C-REACTIVE PROTEIN INCREASED [None]
  - OROPHARYNGEAL PAIN [None]
  - PROTHROMBIN TIME PROLONGED [None]
  - RASH [None]
  - WHITE BLOOD CELL COUNT INCREASED [None]
